FAERS Safety Report 5088441-3 (Version None)
Quarter: 2006Q3

REPORT INFORMATION
  Report Type: 
  Country: None (occurrence: None)
  Receive Date: 20060821
  Receipt Date: 20060622
  Transmission Date: 20061208
  Serious: Yes (Other)
  Sender: FDA-Public Use
  Company Number: CHPA2006US06519

PATIENT
  Age: 58 Year
  Sex: Female
  Weight: 76.2 kg

DRUGS (1)
  1. NICOTINE [Suspect]
     Indication: SMOKING CESSATION THERAPY
     Dosage: 14 MG, QD, TRANSDERMAL
     Route: 062
     Dates: start: 20060610

REACTIONS (2)
  - ANGINA PECTORIS [None]
  - NON-CARDIAC CHEST PAIN [None]
